FAERS Safety Report 7976170-5 (Version None)
Quarter: 2011Q4

REPORT INFORMATION
  Report Type: 
  Country: None (occurrence: None)
  Receive Date: 20111213
  Receipt Date: 20111013
  Transmission Date: 20120403
  Serious: No
  Sender: FDA-Public Use
  Company Number: US-AMGEN-USASP2011053006

PATIENT
  Sex: Female

DRUGS (2)
  1. TREXALL [Concomitant]
     Dosage: UNK
  2. ENBREL [Suspect]
     Indication: RHEUMATOID ARTHRITIS
     Dosage: 50 MG, QWK
     Dates: start: 20111004

REACTIONS (4)
  - ARTHRALGIA [None]
  - PAIN [None]
  - NECK PAIN [None]
  - JOINT SWELLING [None]
